FAERS Safety Report 4426820-5 (Version None)
Quarter: 2004Q3

REPORT INFORMATION
  Report Type: 
  Country: None (occurrence: None)
  Receive Date: 20040816
  Receipt Date: 20040709
  Transmission Date: 20050211
  Serious: Yes (Other)
  Sender: FDA-Public Use
  Company Number: CH-GLAXOSMITHKLINE-B0339401A

PATIENT
  Age: 64 Year
  Sex: Female

DRUGS (2)
  1. LAMICTAL [Suspect]
     Indication: EPILEPSY
     Dosage: 200MG PER DAY
     Route: 048
     Dates: start: 19981116
  2. MYSOLINE [Suspect]

REACTIONS (6)
  - BLOOD ALKALINE PHOSPHATASE INCREASED [None]
  - BLOOD AMYLASE INCREASED [None]
  - GAMMA-GLUTAMYLTRANSFERASE INCREASED [None]
  - GASTROOESOPHAGEAL REFLUX DISEASE [None]
  - HEPATITIS CHOLESTATIC [None]
  - LEUCINE AMINOPEPTIDASE INCREASED [None]
